FAERS Safety Report 12603437 (Version 2)
Quarter: 2016Q3

REPORT INFORMATION
  Report Type: Spontaneous
  Country: IT (occurrence: IT)
  Receive Date: 20160728
  Receipt Date: 20160822
  Transmission Date: 20161109
  Serious: Yes (Death, Hospitalization)
  Sender: FDA-Public Use
  Company Number: IT-ABBVIE-16P-083-1685511-00

PATIENT
  Age: 84 Year
  Sex: Female

DRUGS (11)
  1. VIEKIRAX [Suspect]
     Active Substance: OMBITASVIR\PARITAPREVIR\RITONAVIR
     Indication: CHRONIC HEPATITIS C
     Dosage: DAILY
     Route: 048
     Dates: start: 20160408, end: 20160630
  2. EXVIERA [Suspect]
     Active Substance: DASABUVIR
     Indication: CHRONIC HEPATITIS C
     Dosage: DAILY
     Route: 048
     Dates: start: 20160408, end: 20160630
  3. ALDACTONE [Concomitant]
     Active Substance: SPIRONOLACTONE
     Indication: HEPATIC CIRRHOSIS
     Dosage: DAILY
     Dates: start: 20160601
  4. CATAPRESAN [Concomitant]
     Active Substance: CLONIDINE
     Indication: HYPERTENSION
     Dosage: 2.5 TTS PATCH
     Route: 062
  5. RANITIDINE. [Concomitant]
     Active Substance: RANITIDINE
     Indication: PRODUCT USED FOR UNKNOWN INDICATION
     Dosage: DAILY
  6. ENALAPRIL [Concomitant]
     Active Substance: ENALAPRIL
     Indication: PRODUCT USED FOR UNKNOWN INDICATION
     Dosage: DAILY
  7. DILATREND [Concomitant]
     Active Substance: CARVEDILOL
     Indication: HYPERTENSION
     Dosage: 1/2 TABLET
     Route: 048
  8. LASIX [Concomitant]
     Active Substance: FUROSEMIDE
     Indication: PRODUCT USED FOR UNKNOWN INDICATION
     Route: 048
     Dates: start: 20160601, end: 20160630
  9. ASPIRIN. [Concomitant]
     Active Substance: ASPIRIN
     Indication: PRODUCT USED FOR UNKNOWN INDICATION
     Dosage: DAILY
  10. ENAPREN [Concomitant]
     Active Substance: ENALAPRIL MALEATE
     Indication: HYPERTENSION
     Route: 048
  11. CARDIOASPIRIN [Concomitant]
     Active Substance: ASPIRIN
     Indication: THROMBOSIS PROPHYLAXIS
     Route: 048

REACTIONS (5)
  - Depressed level of consciousness [Fatal]
  - Cardiac arrest [Fatal]
  - Gait disturbance [Fatal]
  - Pneumonia [Fatal]
  - Asthenia [Not Recovered/Not Resolved]

NARRATIVE: CASE EVENT DATE: 20160628
